FAERS Safety Report 6385896-9 (Version None)
Quarter: 2009Q4

REPORT INFORMATION
  Report Type: 
  Country: None (occurrence: None)
  Receive Date: 20091002
  Receipt Date: 20090115
  Transmission Date: 20100525
  Serious: No
  Sender: FDA-Public Use
  Company Number: US-ASTRAZENECA-2009UW01321

PATIENT
  Age: 62 Year
  Sex: Female
  Weight: 77.1 kg

DRUGS (4)
  1. ARIMIDEX [Suspect]
     Indication: BREAST CANCER
     Route: 048
     Dates: start: 20080101
  2. LISINOPRIL [Concomitant]
  3. LAMOTRIGINE [Concomitant]
  4. VITAMIN D [Concomitant]

REACTIONS (4)
  - ARTHRALGIA [None]
  - HOT FLUSH [None]
  - PAIN [None]
  - SKIN DISCOLOURATION [None]
